FAERS Safety Report 18657224 (Version 1)
Quarter: 2020Q4

REPORT INFORMATION
  Report Type: Spontaneous
  Country: US (occurrence: US)
  Receive Date: 20201223
  Receipt Date: 20201223
  Transmission Date: 20210114
  Serious: No
  Sender: FDA-Public Use
  Company Number: US-BIOGEN-2020BI00959096

PATIENT
  Age: 39 Year
  Sex: Female

DRUGS (1)
  1. VUMERITY [Suspect]
     Active Substance: DIROXIMEL FUMARATE
     Indication: MULTIPLE SCLEROSIS
     Route: 065

REACTIONS (5)
  - Headache [Unknown]
  - Cognitive disorder [Unknown]
  - Dizziness [Unknown]
  - Diplopia [Unknown]
  - Ear discomfort [Unknown]

NARRATIVE: CASE EVENT DATE: 20201212
